FAERS Safety Report 12479653 (Version 11)
Quarter: 2017Q3

REPORT INFORMATION
  Report Type: Spontaneous
  Country: US (occurrence: US)
  Receive Date: 20160620
  Receipt Date: 20170814
  Transmission Date: 20171127
  Serious: Yes (Other)
  Sender: FDA-Public Use
  Company Number: US-PFIZER INC-2016283882

PATIENT
  Age: 53 Year
  Sex: Male
  Weight: 79.82 kg

DRUGS (6)
  1. SUTENT [Suspect]
     Active Substance: SUNITINIB MALATE
     Dosage: 50 MG, CYCLIC (DAILY 2 WEEKS ON/1 WEEK OFF)
     Dates: start: 20160523, end: 20170806
  2. GEMZAR [Suspect]
     Active Substance: GEMCITABINE HYDROCHLORIDE
     Dosage: UNK
     Dates: end: 201612
  3. TRAMADOL. [Concomitant]
     Active Substance: TRAMADOL
     Dosage: UNK
     Dates: start: 201605
  4. SUTENT [Suspect]
     Active Substance: SUNITINIB MALATE
     Indication: METASTATIC RENAL CELL CARCINOMA
     Dosage: 37.5 MG, CYCLIC (DAILY FOR 2 WEEKS ON/1 WEEK OFF)
     Dates: start: 20160523
  5. GEMZAR [Suspect]
     Active Substance: GEMCITABINE HYDROCHLORIDE
     Indication: METASTATIC RENAL CELL CARCINOMA
     Dosage: 1000 MG /SQ MTR, CYCLIC (WEEKLY FOR 2 WEEKS ON / 1 WEEK OFF)
     Route: 042
     Dates: start: 20160523, end: 20161031
  6. SENOKOT [Concomitant]
     Active Substance: SENNOSIDES
     Dosage: UNK
     Dates: start: 201605

REACTIONS (15)
  - Neoplasm progression [Unknown]
  - Fatigue [Not Recovered/Not Resolved]
  - Neutropenia [Not Recovered/Not Resolved]
  - Food poisoning [Unknown]
  - Dysgeusia [Not Recovered/Not Resolved]
  - Diarrhoea [Recovering/Resolving]
  - Dizziness [Unknown]
  - Condition aggravated [Unknown]
  - Seizure [Unknown]
  - Headache [Unknown]
  - Vomiting [Recovering/Resolving]
  - Oral disorder [Unknown]
  - Hiccups [Unknown]
  - Nausea [Unknown]
  - Gingival pain [Recovered/Resolved]

NARRATIVE: CASE EVENT DATE: 201605
